FAERS Safety Report 8375950-4 (Version None)
Quarter: 2012Q2

REPORT INFORMATION
  Report Type: 
  Country: None (occurrence: None)
  Receive Date: 20120522
  Receipt Date: 20120514
  Transmission Date: 20120825
  Serious: Yes (Other)
  Sender: FDA-Public Use
  Company Number: DE-ASTELLAS-2012US004733

PATIENT
  Age: 70 Year
  Sex: Female

DRUGS (3)
  1. GEMCITABINE [Concomitant]
     Indication: PANCREATIC CARCINOMA METASTATIC
     Dosage: UNK
     Route: 065
  2. TARCEVA [Suspect]
     Indication: PANCREATIC CARCINOMA METASTATIC
     Dosage: 100 MG, UID/QD
     Route: 048
  3. TARCEVA [Suspect]
     Dosage: 25 MG, UID/QD
     Route: 048

REACTIONS (1)
  - MUCOSAL INFLAMMATION [None]
